FAERS Safety Report 21795109 (Version 2)
Quarter: 2023Q1

REPORT INFORMATION
  Report Type: Report from Study
  Country: US (occurrence: None)
  Receive Date: 20221229
  Receipt Date: 20230117
  Transmission Date: 20230418
  Serious: Yes (Death, Hospitalization)
  Sender: FDA-Public Use
  Company Number: US-Eisai Medical Research-EC-2022-131084

PATIENT
  Age: 65 Year
  Sex: Female

DRUGS (5)
  1. LENVIMA [Suspect]
     Active Substance: LENVATINIB
     Indication: Thyroid cancer
     Route: 048
     Dates: start: 202205, end: 20220515
  2. LENVIMA [Suspect]
     Active Substance: LENVATINIB
     Route: 048
     Dates: start: 20220516, end: 2022
  3. LENVIMA [Suspect]
     Active Substance: LENVATINIB
     Dosage: MONDAY TO FRIDAY, THEN OFF SATURDAY -SUNDAY
     Route: 048
     Dates: start: 2022, end: 2022
  4. LENVIMA [Suspect]
     Active Substance: LENVATINIB
     Route: 048
     Dates: start: 20220617, end: 2022
  5. LENVIMA [Suspect]
     Active Substance: LENVATINIB
     Dosage: 10 MG CAPSULE AND 20MG CAPSULE, ALTERNATING DAYS, THEN NO THERAPY ON SATURDAY -SUNDAY
     Route: 048
     Dates: start: 202208

REACTIONS (2)
  - Haematemesis [Recovering/Resolving]
  - Malignant neoplasm progression [Fatal]

NARRATIVE: CASE EVENT DATE: 20221221
